FAERS Safety Report 4869536-3 (Version None)
Quarter: 2005Q4

REPORT INFORMATION
  Report Type: 
  Country: None (occurrence: None)
  Receive Date: 20051227
  Receipt Date: 20051213
  Transmission Date: 20060501
  Serious: Yes (Hospitalization)
  Sender: FDA-Public Use
  Company Number: CH-JNJFOC-20051204295

PATIENT
  Age: 77 Year
  Sex: Female

DRUGS (5)
  1. HALDOL [Suspect]
     Dosage: 7 GTT, 2 IN 1 DAY, ORAL
     Route: 048
     Dates: start: 20051101
  2. SURMONTIL [Concomitant]
  3. NOVONORM (REPAGLINIDE) [Concomitant]
  4. BELOC-ZOK (BELOC-ZOC COMP) [Concomitant]
  5. NITRODERM [Concomitant]

REACTIONS (4)
  - BRONCHOPNEUMONIA [None]
  - DISORIENTATION [None]
  - EXTRAPYRAMIDAL DISORDER [None]
  - STRIDOR [None]
